FAERS Safety Report 12481950 (Version 5)
Quarter: 2018Q4

REPORT INFORMATION
  Report Type: Report from Study
  Country: FI (occurrence: FI)
  Receive Date: 20160620
  Receipt Date: 20181009
  Transmission Date: 20190204
  Serious: Yes (Life-Threatening, Hospitalization, Other)
  Sender: FDA-Public Use
  Company Number: FI-PFIZER INC-2016298341

PATIENT
  Age: 46 Year
  Sex: Male

DRUGS (7)
  1. TEMESTA (LORAZEPAM) [Suspect]
     Active Substance: LORAZEPAM
     Indication: ANXIETY
     Dosage: 0.5 MG, 3X/DAY
     Dates: start: 2007
  2. LEPONEX [Suspect]
     Active Substance: CLOZAPINE
     Indication: SCHIZOAFFECTIVE DISORDER
     Dosage: 300 MG, QD
     Dates: start: 2002
  3. TEMESTA (LORAZEPAM) [Suspect]
     Active Substance: LORAZEPAM
     Dosage: 1 MG, QD
  4. LEPONEX [Suspect]
     Active Substance: CLOZAPINE
     Indication: SCHIZOPHRENIA
     Dosage: 300 MG, QD
     Dates: start: 2006
  5. CITALOPRAM [Suspect]
     Active Substance: CITALOPRAM HYDROBROMIDE
     Dosage: 20 MG, QD
     Dates: start: 2006
  6. LEPONEX [Suspect]
     Active Substance: CLOZAPINE
     Dosage: UNK
     Dates: start: 201608
  7. CITALOPRAM [Suspect]
     Active Substance: CITALOPRAM HYDROBROMIDE
     Indication: OBSESSIVE-COMPULSIVE SYMPTOM
     Dosage: 80 MG, QD
     Dates: start: 2006

REACTIONS (10)
  - Loss of consciousness [Unknown]
  - Rhabdomyolysis [Recovered/Resolved]
  - Anuria [Recovered/Resolved]
  - Mental impairment [Not Recovered/Not Resolved]
  - Suicidal behaviour [Recovered/Resolved]
  - Tangentiality [Unknown]
  - Suicide attempt [Unknown]
  - Intentional overdose [Unknown]
  - Renal injury [Recovered/Resolved]
  - Blood creatinine increased [Not Recovered/Not Resolved]

NARRATIVE: CASE EVENT DATE: 201605
